FAERS Safety Report 13321465 (Version 2)
Quarter: 2017Q1

REPORT INFORMATION
  Report Type: Report from Study
  Country: FR (occurrence: FR)
  Receive Date: 20170310
  Receipt Date: 20170329
  Transmission Date: 20170428
  Serious: Yes (Disabling)
  Sender: FDA-Public Use
  Company Number: FR-ROCHE-1904912

PATIENT
  Age: 38 Year
  Sex: Female
  Weight: 50 kg

DRUGS (4)
  1. PERTUZUMAB [Suspect]
     Active Substance: PERTUZUMAB
     Dosage: MAINTAINANCE DOSE, LAST DOSE PRIOR TO THE EVENT ON: 04/MAR/2014
     Route: 042
  2. TRASTUZUMAB [Suspect]
     Active Substance: TRASTUZUMAB
     Indication: HER-2 POSITIVE BREAST CANCER
     Dosage: CYCLE 1 ONLY AS PER PROTOCOL, LOADING DOSE, ?ON 27/MAR/2013, SHE RECEIVED 2ND CYCLE (KIT NUMBER: 150
     Route: 042
     Dates: start: 20130306
  3. TRASTUZUMAB [Suspect]
     Active Substance: TRASTUZUMAB
     Dosage: MAINTAINANCE DOSE, LAST DOSE PRIOR TO THE EVENT ON:04/MAR/2014
     Route: 042
  4. PERTUZUMAB [Suspect]
     Active Substance: PERTUZUMAB
     Indication: HER-2 POSITIVE BREAST CANCER
     Dosage: CYCLE 1 ONLY AS PER PROTOCOL, LOADING DOSE
     Route: 042
     Dates: start: 20130306

REACTIONS (2)
  - Rib fracture [Recovering/Resolving]
  - Neuralgic amyotrophy [Not Recovered/Not Resolved]

NARRATIVE: CASE EVENT DATE: 20160419
